FAERS Safety Report 26177205 (Version 1)
Quarter: 2025Q4

REPORT INFORMATION
  Report Type: Spontaneous
  Country: BR (occurrence: BR)
  Receive Date: 20251219
  Receipt Date: 20251219
  Transmission Date: 20260118
  Serious: Yes (Hospitalization)
  Sender: NOVARTIS
  Company Number: BR-002147023-NVSC2025BR188277

PATIENT
  Age: 40 Year
  Sex: Male
  Weight: 71 kg

DRUGS (1)
  1. COSENTYX [Suspect]
     Active Substance: SECUKINUMAB
     Indication: Psoriasis
     Dosage: UNK (2 PENS, EVERY 4 WEEKS)
     Route: 058
     Dates: end: 202511

REACTIONS (1)
  - Tuberculosis [Recovering/Resolving]

NARRATIVE: CASE EVENT DATE: 20251101
